FAERS Safety Report 20648485 (Version 1)
Quarter: 2022Q1

REPORT INFORMATION
  Report Type: Spontaneous
  Country: GB (occurrence: GB)
  Receive Date: 20220329
  Receipt Date: 20220329
  Transmission Date: 20220424
  Serious: Yes (Other)
  Sender: FDA-Public Use
  Company Number: None

PATIENT
  Sex: Female

DRUGS (1)
  1. ESCITALOPRAM [Suspect]
     Active Substance: ESCITALOPRAM OXALATE
     Indication: Product used for unknown indication
     Dosage: 10MG ONCE A DAY; ;
     Dates: start: 20220319, end: 20220319

REACTIONS (2)
  - Medication error [Unknown]
  - Restlessness [Recovered/Resolved]

NARRATIVE: CASE EVENT DATE: 20220319
